FAERS Safety Report 15201261 (Version 1)
Quarter: 2018Q3

REPORT INFORMATION
  Report Type: Spontaneous
  Country: US (occurrence: US)
  Receive Date: 20180627
  Receipt Date: 20180627
  Transmission Date: 20181010
  Serious: Yes (Life-Threatening, Hospitalization)
  Sender: FDA-Public Use
  Company Number: None

PATIENT
  Age: 59 Year
  Sex: Male
  Weight: 95 kg

DRUGS (2)
  1. ALTEPLASE. [Suspect]
     Active Substance: ALTEPLASE
     Indication: ISCHAEMIC STROKE
     Dosage: ?          OTHER FREQUENCY:BOLUS/INFUS ONCE;?
     Route: 042
     Dates: start: 20180330, end: 20180330
  2. LISINOPRIL. [Suspect]
     Active Substance: LISINOPRIL
     Indication: HYPERTENSION
     Route: 048

REACTIONS (6)
  - Fall [None]
  - Dizziness [None]
  - Social alcohol drinker [None]
  - Condition aggravated [None]
  - Bradyphrenia [None]
  - Ischaemic stroke [None]

NARRATIVE: CASE EVENT DATE: 20180330
